FAERS Safety Report 9768906 (Version 1)
Quarter: 2013Q4

REPORT INFORMATION
  Report Type: Spontaneous
  Country: US (occurrence: None)
  Receive Date: 20131217
  Receipt Date: 20131217
  Transmission Date: 20140711
  Serious: Yes (Other)
  Sender: FDA-Public Use
  Company Number: None

PATIENT
  Age: 47 Year
  Sex: Male
  Weight: 149.69 kg

DRUGS (1)
  1. CEFDINIR [Suspect]
     Indication: BRONCHITIS
     Dosage: ONE CAPSULE TWICE DAILY TAKEN BY MOUTH
     Dates: start: 20131202, end: 20131212

REACTIONS (7)
  - Urticaria [None]
  - Pruritus [None]
  - Pruritus [None]
  - Arthralgia [None]
  - Affective disorder [None]
  - Sleep disorder [None]
  - Drug ineffective [None]
